FAERS Safety Report 16926214 (Version 3)
Quarter: 2021Q1

REPORT INFORMATION
  Report Type: Spontaneous
  Country: CH (occurrence: CH)
  Receive Date: 20191016
  Receipt Date: 20210126
  Transmission Date: 20210419
  Serious: Yes (Hospitalization, Other)
  Sender: FDA-Public Use
  Company Number: CH-PFIZER INC-2019438755

PATIENT
  Age: 80 Year
  Sex: Female

DRUGS (24)
  1. ANTRAMUPS [Suspect]
     Active Substance: OMEPRAZOLE
     Dosage: 20 MG, 1X/DAY
     Route: 048
  2. RANEXA [Suspect]
     Active Substance: RANOLAZINE
     Dosage: UNK
     Dates: start: 201909, end: 20190920
  3. RELVAR ELLIPTA [FLUTICASONE FUROATE;VILANTEROL TRIFENATATE] [Concomitant]
     Active Substance: FLUTICASONE FUROATE\VILANTEROL TRIFENATATE
     Dosage: UNK
     Dates: start: 20190912
  4. OPATANOL [Concomitant]
     Active Substance: OLOPATADINE
     Dosage: UNK
     Dates: end: 20190912
  5. ISOKET [Concomitant]
     Active Substance: ISOSORBIDE DINITRATE
     Dosage: AS NECESSARY
     Dates: start: 20190912
  6. NISULID [Suspect]
     Active Substance: NIMESULIDE
     Dosage: UNK
     Dates: end: 20190912
  7. XULTOPHY 100/3.6 [Suspect]
     Active Substance: INSULIN DEGLUDEC\LIRAGLUTIDE
     Dosage: 24 IU, 1X/DAY
  8. ASPIRIN CARDIO [Concomitant]
     Active Substance: ASPIRIN
     Dosage: UNK
  9. APROVEL [Concomitant]
     Active Substance: IRBESARTAN
     Indication: ACUTE KIDNEY INJURY
     Dosage: UNK
     Dates: end: 20190912
  10. ELIDEL [Concomitant]
     Active Substance: PIMECROLIMUS
     Dosage: UNK
  11. APROVEL [Concomitant]
     Active Substance: IRBESARTAN
     Dosage: UNK
     Dates: start: 20190916
  12. OCULAC [POVIDONE] [Concomitant]
     Dosage: UNK AS NECESSARY
  13. OLOPATANOL [Concomitant]
     Dosage: UNK
     Dates: end: 20190912
  14. LUVIT D3 [Concomitant]
     Active Substance: CHOLECALCIFEROL
     Dosage: UNK
  15. ANORO ELLIPTA [Concomitant]
     Active Substance: UMECLIDINIUM BROMIDE\VILANTEROL TRIFENATATE
     Dosage: UNK
     Dates: end: 20190912
  16. EUTHYROX [Concomitant]
     Active Substance: LEVOTHYROXINE SODIUM
     Dosage: UNK
  17. RELVAR ELLIPTA [FLUTICASONE FUROATE;VILANTEROL TRIFENATATE] [Concomitant]
     Active Substance: FLUTICASONE FUROATE\VILANTEROL TRIFENATATE
     Dosage: UNK
  18. OVESTIN [Concomitant]
     Active Substance: ESTRIOL
     Dosage: UNK
  19. SYMBICORT [Concomitant]
     Active Substance: BUDESONIDE\FORMOTEROL FUMARATE DIHYDRATE
     Dosage: AS NECESSARY
  20. ISOKET [Concomitant]
     Active Substance: ISOSORBIDE DINITRATE
     Indication: CHEST DISCOMFORT
     Dosage: UNK
     Dates: end: 20190912
  21. DALACIN C [Suspect]
     Active Substance: CLINDAMYCIN
     Indication: DENTAL OPERATION
     Dosage: 1 DF, IN TOTAL
     Route: 048
     Dates: start: 20190903, end: 20190903
  22. RANEXA [Suspect]
     Active Substance: RANOLAZINE
     Indication: ANGINA PECTORIS
     Dosage: UNK, 1X/DAY
     Dates: start: 201909, end: 20190912
  23. OCULAC [POVIDONE] [Concomitant]
     Dosage: UNK, AS NEEDED
  24. FEXOFENADINE [Concomitant]
     Active Substance: FEXOFENADINE HYDROCHLORIDE
     Dosage: AS NECESSARY
     Dates: end: 20190912

REACTIONS (7)
  - Constipation [Recovered/Resolved]
  - Dehydration [Recovered/Resolved]
  - Asthenia [Recovered/Resolved]
  - Diarrhoea [Recovered/Resolved]
  - Acute kidney injury [Recovered/Resolved]
  - Dysbiosis [Recovered/Resolved]
  - Gastroenteritis viral [Recovered/Resolved]

NARRATIVE: CASE EVENT DATE: 201909
